FAERS Safety Report 6747412-9 (Version None)
Quarter: 2010Q2

REPORT INFORMATION
  Report Type: 
  Country: None (occurrence: None)
  Receive Date: 20100528
  Receipt Date: 20100517
  Transmission Date: 20101027
  Serious: Yes (Other)
  Sender: FDA-Public Use
  Company Number: US-BAYER-201022957NA

PATIENT
  Age: 39 Year
  Sex: Female
  Weight: 47 kg

DRUGS (5)
  1. YAZ [Suspect]
     Indication: ORAL CONTRACEPTION
     Route: 048
     Dates: start: 20060501, end: 20080901
  2. YASMIN [Suspect]
     Indication: ORAL CONTRACEPTION
     Route: 048
     Dates: start: 20080901, end: 20090901
  3. OCELLA [Suspect]
     Indication: ORAL CONTRACEPTION
     Dosage: FROM APPROXIMATELY FALL-2007 TO FALL-2009
     Route: 048
     Dates: start: 20070101, end: 20090101
  4. ANTIBIOTICS [Concomitant]
  5. ADVIL LIQUI-GELS [Concomitant]

REACTIONS (5)
  - CHOLECYSTITIS CHRONIC [None]
  - DIARRHOEA [None]
  - FAT INTOLERANCE [None]
  - NAUSEA [None]
  - VOMITING [None]
